FAERS Safety Report 13695344 (Version 9)
Quarter: 2018Q1

REPORT INFORMATION
  Report Type: Spontaneous
  Country: US (occurrence: US)
  Receive Date: 20170627
  Receipt Date: 20180205
  Transmission Date: 20180508
  Serious: No
  Sender: FDA-Public Use
  Company Number: US-ACTELION-A-US2017-151246

PATIENT
  Age: 72 Year
  Sex: Female

DRUGS (14)
  1. UPTRAVI [Suspect]
     Active Substance: SELEXIPAG
     Dosage: UNK
     Route: 048
  2. UPTRAVI [Suspect]
     Active Substance: SELEXIPAG
     Indication: PULMONARY HYPERTENSION
     Dosage: 800 MCG, UNK
     Route: 048
  3. AMBRISENTAN [Suspect]
     Active Substance: AMBRISENTAN
     Indication: SCLERODERMA
     Dosage: 10 MG, QD
     Route: 065
     Dates: start: 20140613
  4. WARFARIN [Concomitant]
     Active Substance: WARFARIN
  5. COUMADIN [Concomitant]
     Active Substance: WARFARIN SODIUM
  6. UPTRAVI [Suspect]
     Active Substance: SELEXIPAG
     Dosage: 1400 MCG, QD
     Route: 048
     Dates: start: 201703
  7. REVATIO [Concomitant]
     Active Substance: SILDENAFIL CITRATE
  8. ADCIRCA [Concomitant]
     Active Substance: TADALAFIL
  9. AMLODIPINE [Concomitant]
     Active Substance: AMLODIPINE BESYLATE
  10. AMBRISENTAN [Suspect]
     Active Substance: AMBRISENTAN
     Indication: PULMONARY HYPERTENSION
  11. UPTRAVI [Suspect]
     Active Substance: SELEXIPAG
     Dosage: 800 MCG, BID
     Route: 048
  12. UPTRAVI [Suspect]
     Active Substance: SELEXIPAG
     Dosage: 600 MCG, BID
     Route: 048
  13. REMODULIN [Suspect]
     Active Substance: TREPROSTINIL
     Indication: PULMONARY ARTERIAL HYPERTENSION
     Dosage: 8 NG/KG, PER MIN
     Route: 058
     Dates: start: 201703
  14. SILDENAFIL CITRATE. [Concomitant]
     Active Substance: SILDENAFIL CITRATE

REACTIONS (9)
  - Infusion site pain [Not Recovered/Not Resolved]
  - Headache [Recovered/Resolved]
  - Pain in extremity [Recovered/Resolved]
  - Infusion site discharge [Not Recovered/Not Resolved]
  - Injection site swelling [Recovered/Resolved]
  - Oxygen saturation abnormal [Unknown]
  - Malaise [Recovered/Resolved]
  - Condition aggravated [Recovered/Resolved]
  - Infusion site haemorrhage [Not Recovered/Not Resolved]
